FAERS Safety Report 5382334-X (Version None)
Quarter: 2007Q2

REPORT INFORMATION
  Report Type: 
  Country: None (occurrence: None)
  Receive Date: 20070629
  Receipt Date: 20070330
  Transmission Date: 20071010
  Serious: Yes (Hospitalization)
  Sender: FDA-Public Use
  Company Number: US200703006669

PATIENT
  Sex: Female

DRUGS (3)
  1. HUMALOG MIX 75/25 [Suspect]
     Indication: DIABETES MELLITUS
  2. HUMALOG MIX 25L / 75NPL PEN (HUMALOG MIX 25L / 75NPL PEN) PEN,DISPOSAB [Concomitant]
  3. TOPRAL (SULTOPRIDE) [Concomitant]

REACTIONS (5)
  - BLOOD PRESSURE INCREASED [None]
  - BODY TEMPERATURE DECREASED [None]
  - FEELING ABNORMAL [None]
  - HEART RATE INCREASED [None]
  - HYPERHIDROSIS [None]
